FAERS Safety Report 15922552 (Version 1)
Quarter: 2019Q1

REPORT INFORMATION
  Report Type: Spontaneous
  Country: FR (occurrence: FR)
  Receive Date: 20190206
  Receipt Date: 20190206
  Transmission Date: 20190417
  Serious: Yes (Hospitalization)
  Sender: FDA-Public Use
  Company Number: FR-TEVA-2019-FR-1008177

PATIENT
  Age: 69 Year
  Sex: Female
  Weight: 72 kg

DRUGS (11)
  1. KAYEXALATE [Concomitant]
     Active Substance: SODIUM POLYSTYRENE SULFONATE
  2. LISINOPRIL ANHYDRE [Suspect]
     Active Substance: LISINOPRIL
     Indication: HYPERTENSION
     Dosage: 40 MILLIGRAM DAILY;
     Route: 048
     Dates: end: 20181220
  3. MOSCONTIN [Concomitant]
     Active Substance: MORPHINE SULFATE
  4. KARDEGIC [Concomitant]
     Active Substance: ASPIRIN DL-LYSINE
  5. BIPROFENID [Concomitant]
     Active Substance: KETOPROFEN
     Indication: PAIN
     Dosage: 200 MILLIGRAM DAILY;
     Route: 048
  6. FUROSEMIDE. [Suspect]
     Active Substance: FUROSEMIDE
     Indication: HYPERTENSION
     Dosage: 40 MILLIGRAM DAILY;
     Route: 048
     Dates: end: 20181220
  7. DOMPERIDONE [Concomitant]
     Active Substance: DOMPERIDONE
  8. SPASFON [Concomitant]
  9. BISOCE [Concomitant]
     Active Substance: BISOPROLOL
  10. LEVOTHYROX [Concomitant]
     Active Substance: LEVOTHYROXINE
  11. OMEPRAZOLE. [Suspect]
     Active Substance: OMEPRAZOLE
     Indication: OESOPHAGITIS
     Dosage: 40 MILLIGRAM DAILY;
     Route: 048
     Dates: end: 20181220

REACTIONS (2)
  - Hyponatraemia [Recovering/Resolving]
  - Hypotension [Recovered/Resolved]

NARRATIVE: CASE EVENT DATE: 20181212
